FAERS Safety Report 5444405-9 (Version None)
Quarter: 2007Q3

REPORT INFORMATION
  Report Type: 
  Country: None (occurrence: None)
  Receive Date: 20070831
  Receipt Date: 20070815
  Transmission Date: 20080115
  Serious: Yes (Hospitalization)
  Sender: FDA-Public Use
  Company Number: 2007BI018164

PATIENT
  Age: 38 Year
  Sex: Female
  Weight: 65 kg

DRUGS (4)
  1. AVONEX [Suspect]
     Indication: MULTIPLE SCLEROSIS
     Dosage: 1 UNK;QW; IM
     Route: 030
     Dates: start: 20040101
  2. CLONAZEPAM [Concomitant]
  3. AMITRIPTYLINE HCL [Concomitant]
  4. CHLORPROMAZINE [Concomitant]

REACTIONS (8)
  - FALL [None]
  - FOOT FRACTURE [None]
  - HEADACHE [None]
  - MENOPAUSE [None]
  - MULTIPLE SCLEROSIS RELAPSE [None]
  - PAIN [None]
  - PARAESTHESIA [None]
  - VISION BLURRED [None]
